FAERS Safety Report 5167668-6 (Version None)
Quarter: 2006Q4

REPORT INFORMATION
  Report Type: 
  Country: None (occurrence: None)
  Receive Date: 20061201
  Receipt Date: 20061201
  Transmission Date: 20070319
  Serious: Yes (Other)
  Sender: FDA-Public Use
  Company Number: None

PATIENT
  Sex: Female
  Weight: 72.5755 kg

DRUGS (2)
  1. MOBIC 15 MG BOEHRINGER [Suspect]
     Indication: ARTHRITIS
     Dosage: 1 TABLET ONCE DAILY PO
     Route: 048
     Dates: start: 20061129, end: 20061129
  2. MOBIC 15 MG BOEHRINGER [Suspect]
     Indication: INFLAMMATION
     Dosage: 1 TABLET ONCE DAILY PO
     Route: 048
     Dates: start: 20061129, end: 20061129

REACTIONS (6)
  - FACE OEDEMA [None]
  - HYPERSENSITIVITY [None]
  - LOCAL SWELLING [None]
  - PRURITUS [None]
  - RASH [None]
  - URTICARIA [None]
